FAERS Safety Report 5528903-5 (Version None)
Quarter: 2007Q4

REPORT INFORMATION
  Report Type: 
  Country: None (occurrence: None)
  Receive Date: 20071129
  Receipt Date: 20071127
  Transmission Date: 20080405
  Serious: Yes (Hospitalization)
  Sender: FDA-Public Use
  Company Number: NO-WYE-G00683907

PATIENT
  Sex: Female

DRUGS (9)
  1. RAPAMUNE [Suspect]
     Indication: LIVER TRANSPLANT
     Route: 048
     Dates: start: 20070928, end: 20071031
  2. BUMETANIDE [Concomitant]
     Route: 048
  3. NOVORAPID [Concomitant]
     Dosage: UNKNOWN
     Route: 058
  4. POTASSIUM CHLORIDE [Concomitant]
     Route: 048
  5. PREDNISOLONE [Concomitant]
     Route: 048
  6. ALBYL-E [Concomitant]
     Route: 048
  7. CALCIGRAN [Concomitant]
     Route: 048
  8. CELLCEPT [Concomitant]
     Route: 048
  9. LEVOTHYROXINE SODIUM [Concomitant]
     Dosage: 100UG, 2 TABLETS MONDAY AND THURSDAY, 1 TABLET A DAY THE REST OF THE WEEK.
     Route: 048

REACTIONS (3)
  - ORAL MUCOSA EROSION [None]
  - PYREXIA [None]
  - RASH [None]
